FAERS Safety Report 13099971 (Version 1)
Quarter: 2017Q1

REPORT INFORMATION
  Report Type: Spontaneous
  Country: JP (occurrence: JP)
  Receive Date: 20170110
  Receipt Date: 20170110
  Transmission Date: 20170428
  Serious: Yes (Death, Other)
  Sender: FDA-Public Use
  Company Number: JP-SUN PHARMACEUTICAL INDUSTRIES LTD-2016R1-110112

PATIENT
  Age: 58 Year
  Sex: Female

DRUGS (4)
  1. CISPLATIN. [Suspect]
     Active Substance: CISPLATIN
     Indication: CHEMOTHERAPY
     Dosage: 75 MG/M^2 ON DAY 1 EVERY 4 WEEKS FOR SIX COURSES
     Route: 042
  2. DOCETAXEL. [Suspect]
     Active Substance: DOCETAXEL
     Indication: CHEMOTHERAPY
     Dosage: 75 MG/M^2 ON DAY 1 EVERY 4 WEEKS FOR SIX COURSES
     Route: 042
  3. DOCETAXEL. [Suspect]
     Active Substance: DOCETAXEL
     Indication: ANAPLASTIC THYROID CANCER
  4. CISPLATIN. [Suspect]
     Active Substance: CISPLATIN
     Indication: ANAPLASTIC THYROID CANCER

REACTIONS (8)
  - Leukopenia [Unknown]
  - Therapeutic response decreased [Unknown]
  - Metastasis [Recovered/Resolved]
  - Disease recurrence [Unknown]
  - Disseminated intravascular coagulation [Fatal]
  - Neutropenia [Unknown]
  - Seizure [Unknown]
  - Altered state of consciousness [Unknown]
